FAERS Safety Report 15929303 (Version 2)
Quarter: 2019Q1

REPORT INFORMATION
  Report Type: Report from Study
  Country: CA (occurrence: CA)
  Receive Date: 20190206
  Receipt Date: 20190321
  Transmission Date: 20190417
  Serious: Yes (Hospitalization, Other)
  Sender: FDA-Public Use
  Company Number: CA-ACTELION-A-US2019-185668

PATIENT
  Sex: Female

DRUGS (15)
  1. CELEBREX [Concomitant]
     Active Substance: CELECOXIB
  2. OXYGEN. [Concomitant]
     Active Substance: OXYGEN
     Dosage: 1.5-2 L, PER MIN
  3. CARIPUL [Suspect]
     Active Substance: EPOPROSTENOL
     Indication: PULMONARY ARTERIAL HYPERTENSION
     Dosage: 3 NG
     Route: 042
     Dates: start: 20190110
  4. VITAMIN D [Concomitant]
     Active Substance: CHOLECALCIFEROL
  5. PLAVIX [Concomitant]
     Active Substance: CLOPIDOGREL BISULFATE
  6. RISEDRONATE [Concomitant]
     Active Substance: RISEDRONATE SODIUM
  7. CARIPUL [Suspect]
     Active Substance: EPOPROSTENOL
     Dosage: 1.5 NG, UNK
     Route: 042
     Dates: start: 20190110
  8. OPSUMIT [Suspect]
     Active Substance: MACITENTAN
     Indication: PULMONARY ARTERIAL HYPERTENSION
     Dosage: UNK
     Route: 048
  9. CALCIUM [Concomitant]
     Active Substance: CALCIUM
  10. ASA [Concomitant]
     Active Substance: ASPIRIN
  11. CRESTOR [Concomitant]
     Active Substance: ROSUVASTATIN CALCIUM
  12. ADCIRCA [Concomitant]
     Active Substance: TADALAFIL
  13. SYNTHROID [Concomitant]
     Active Substance: LEVOTHYROXINE SODIUM
  14. LOSEC [Concomitant]
     Active Substance: OMEPRAZOLE
  15. LASIX [Concomitant]
     Active Substance: FUROSEMIDE

REACTIONS (8)
  - Haemoglobin decreased [Not Recovered/Not Resolved]
  - Blood pressure decreased [Not Recovered/Not Resolved]
  - Feeling abnormal [Unknown]
  - Therapy non-responder [Not Recovered/Not Resolved]
  - Oxygen saturation decreased [Not Recovered/Not Resolved]
  - Peripheral coldness [Not Recovered/Not Resolved]
  - Hospitalisation [Recovered/Resolved]
  - Haematochezia [Not Recovered/Not Resolved]
